FAERS Safety Report 17477059 (Version 1)
Quarter: 2020Q1

REPORT INFORMATION
  Report Type: Spontaneous
  Country: US (occurrence: US)
  Receive Date: 20200229
  Receipt Date: 20200229
  Transmission Date: 20200409
  Serious: Yes (Other)
  Sender: FDA-Public Use
  Company Number: US-AUROBINDO-AUR-APL-2020-010078

PATIENT
  Age: 17 Year
  Sex: Male

DRUGS (1)
  1. MINOCYCLINE [Suspect]
     Active Substance: MINOCYCLINE HYDROCHLORIDE
     Indication: PRODUCT USED FOR UNKNOWN INDICATION
     Dosage: UNK
     Route: 065

REACTIONS (15)
  - Drug reaction with eosinophilia and systemic symptoms [Unknown]
  - Pemphigoid [Unknown]
  - Dyspnoea [Unknown]
  - Transaminases increased [Unknown]
  - Pyrexia [Unknown]
  - Eosinophilia [Unknown]
  - Type 1 diabetes mellitus [Unknown]
  - Exfoliative rash [Unknown]
  - Leukocytosis [Unknown]
  - Interstitial lung disease [Unknown]
  - Autoimmune thyroiditis [Unknown]
  - Pruritus [Unknown]
  - Acute kidney injury [Unknown]
  - Blister [Unknown]
  - Dermatitis exfoliative generalised [Unknown]
